FAERS Safety Report 21524966 (Version 1)
Quarter: 2022Q4

REPORT INFORMATION
  Report Type: Spontaneous
  Country: FR (occurrence: FR)
  Receive Date: 20221030
  Receipt Date: 20221030
  Transmission Date: 20230113
  Serious: Yes (Other)
  Sender: FDA-Public Use
  Company Number: None

PATIENT
  Age: 9 Year
  Sex: Female
  Weight: 33 kg

DRUGS (10)
  1. KEPPRA [Suspect]
     Active Substance: LEVETIRACETAM
     Indication: Seizure prophylaxis
     Dosage: 1000 MG A DAY
     Route: 048
     Dates: start: 20220811
  2. ONCOVIN [Suspect]
     Active Substance: VINCRISTINE SULFATE
     Indication: Optic glioma
     Route: 042
     Dates: start: 20141022, end: 20150429
  3. LOMUSTINE [Suspect]
     Active Substance: LOMUSTINE
     Indication: Optic glioma
     Dosage: 57 MILLIGRAM, MONTHLY (QM)
     Route: 048
     Dates: start: 20160810, end: 20170625
  4. VINBLASTINE SULFATE [Suspect]
     Active Substance: VINBLASTINE SULFATE
     Indication: Optic glioma
     Route: 042
     Dates: start: 20150617, end: 20161223
  5. CARBOPLATIN [Suspect]
     Active Substance: CARBOPLATIN
     Indication: Optic glioma
     Dosage: 340 MILLIGRAM, MONTHLY (QM)
     Route: 042
     Dates: start: 20141022, end: 20150429
  6. PROCARBAZINE [Suspect]
     Active Substance: PROCARBAZINE
     Indication: Optic glioma
     Dosage: 104 MILLIGRAM, MONTHLY (QM)
     Route: 048
     Dates: start: 20160810, end: 20170625
  7. DECAPEPTYL (ACETATE) [Suspect]
     Active Substance: TRIPTORELIN ACETATE
     Indication: Precocious puberty
     Dosage: 22.5 MILLIGRAM, EV 6 MONTHS
     Route: 058
     Dates: start: 201907
  8. LEVOTHYROXINE SODIUM [Suspect]
     Active Substance: LEVOTHYROXINE SODIUM
     Indication: Central hypothyroidism
     Dosage: [DRP] (DROP (1/12 MILLILITRE))
     Route: 048
  9. THIOGUANINE [Suspect]
     Active Substance: THIOGUANINE
     Indication: Optic glioma
     Route: 048
     Dates: start: 20160810, end: 20170625
  10. HYDROCORTISONE ACETATE [Suspect]
     Active Substance: HYDROCORTISONE ACETATE
     Indication: Central hypothyroidism
     Dosage: 10 MILLIGRAM, ONCE DAILY (QD)
     Dates: start: 20220324

REACTIONS (1)
  - Type 2 diabetes mellitus [Not Recovered/Not Resolved]

NARRATIVE: CASE EVENT DATE: 20220819
